FAERS Safety Report 4540705-5 (Version None)
Quarter: 2004Q4

REPORT INFORMATION
  Report Type: 
  Country: None (occurrence: None)
  Receive Date: 20041229
  Receipt Date: 20041220
  Transmission Date: 20050328
  Serious: Yes (Other)
  Sender: FDA-Public Use
  Company Number: 200422327GDDC

PATIENT
  Age: 26 Year
  Sex: Female

DRUGS (2)
  1. OFLOXACIN [Suspect]
     Indication: PELVIC INFLAMMATORY DISEASE
     Route: 048
     Dates: start: 20040810, end: 20040810
  2. METRONIDAZOLE [Suspect]
     Indication: PELVIC INFLAMMATORY DISEASE
     Route: 048
     Dates: start: 20040810, end: 20040810

REACTIONS (1)
  - ANAPHYLACTIC REACTION [None]
